FAERS Safety Report 14974021 (Version 2)
Quarter: 2018Q3

REPORT INFORMATION
  Report Type: Report from Study
  Country: DE (occurrence: DE)
  Receive Date: 20180605
  Receipt Date: 20180718
  Transmission Date: 20181010
  Serious: Yes (Hospitalization, Other)
  Sender: FDA-Public Use
  Company Number: DE-PFIZER INC-2018223888

PATIENT
  Sex: Male
  Weight: 94 kg

DRUGS (26)
  1. METHOTREXATE SODIUM. [Suspect]
     Active Substance: METHOTREXATE SODIUM
     Indication: PSORIATIC ARTHROPATHY
     Dosage: 15 MG, QW
     Route: 048
     Dates: start: 20161215
  2. COSENTYX [Suspect]
     Active Substance: SECUKINUMAB
     Dosage: 150 MG PER APPLICATION
     Route: 065
     Dates: start: 20170608
  3. COSENTYX [Suspect]
     Active Substance: SECUKINUMAB
     Dosage: 150 MG PER APPLICATION
     Route: 065
     Dates: start: 20170715
  4. COSENTYX [Suspect]
     Active Substance: SECUKINUMAB
     Dosage: 150 MG PER APPLICATION
     Route: 065
     Dates: start: 20170915
  5. COSENTYX [Suspect]
     Active Substance: SECUKINUMAB
     Dosage: 150 MG PER APPLICATION
     Route: 065
     Dates: start: 20180115
  6. COSENTYX [Suspect]
     Active Substance: SECUKINUMAB
     Dosage: 150 MG PER APPLICATION
     Route: 065
     Dates: start: 20180315, end: 20180315
  7. RAMIPRIL. [Concomitant]
     Active Substance: RAMIPRIL
     Indication: PRODUCT USED FOR UNKNOWN INDICATION
     Dosage: 5 MG, BID (1?0?1)
     Route: 065
  8. IBUPROFEN. [Suspect]
     Active Substance: IBUPROFEN
     Dosage: 800 OT, TID
     Route: 048
     Dates: start: 20150520
  9. COSENTYX [Suspect]
     Active Substance: SECUKINUMAB
     Dosage: 150 MG PER APPLICATION
     Route: 065
     Dates: start: 20170815
  10. PANTOPRAZOLE [Concomitant]
     Active Substance: PANTOPRAZOLE
     Indication: PRODUCT USED FOR UNKNOWN INDICATION
     Dosage: 40 MG, 1X/DAY(0?0?0?1)
     Route: 065
     Dates: start: 201707
  11. DAIVOBET [Concomitant]
     Active Substance: BETAMETHASONE DIPROPIONATE\CALCIPOTRIENE
     Indication: PSORIASIS
     Dosage: 1 DF, 1X/DAY
     Route: 061
  12. METAMIZOLE [Concomitant]
     Active Substance: METAMIZOLE
     Indication: PRODUCT USED FOR UNKNOWN INDICATION
     Dosage: 30 OT, PRN (MAX 4 PER DAY)
     Route: 065
  13. VALSARTAN. [Concomitant]
     Active Substance: VALSARTAN
     Indication: PRODUCT USED FOR UNKNOWN INDICATION
     Dosage: 80 MG, 1X/DAY(1?0?0?0)
     Route: 065
     Dates: start: 201707
  14. COSENTYX [Suspect]
     Active Substance: SECUKINUMAB
     Indication: ANKYLOSING SPONDYLITIS
     Dosage: 150 MG, SINGLE
     Route: 065
     Dates: start: 20170512
  15. COSENTYX [Suspect]
     Active Substance: SECUKINUMAB
     Dosage: 150 MG PER APPLICATION
     Route: 065
     Dates: start: 20171115
  16. ATORVASTATIN [Concomitant]
     Active Substance: ATORVASTATIN
     Indication: PRODUCT USED FOR UNKNOWN INDICATION
     Dosage: 20 MG, 1X/DAY(0?0?0?1)
     Route: 065
     Dates: start: 201707
  17. COSENTYX [Suspect]
     Active Substance: SECUKINUMAB
     Dosage: 150 MG PER APPLICATION
     Route: 065
     Dates: start: 20170615
  18. COSENTYX [Suspect]
     Active Substance: SECUKINUMAB
     Dosage: 150 MG PER APPLICATION
     Route: 065
     Dates: start: 20171015
  19. METAMIZOLE [Concomitant]
     Active Substance: METAMIZOLE
     Dosage: 40 MG, UNK (0?0?0?1)
     Dates: start: 201707
  20. ASPIRIN. [Concomitant]
     Active Substance: ASPIRIN
     Indication: PRODUCT USED FOR UNKNOWN INDICATION
     Dosage: 100 MG, 1X/DAY(1?0?0?0)
     Route: 065
  21. COSENTYX [Suspect]
     Active Substance: SECUKINUMAB
     Dosage: 150 MG PER APPLICATION
     Route: 065
     Dates: start: 20171215
  22. AMOXICILLIN. [Concomitant]
     Active Substance: AMOXICILLIN
     Indication: PROPHYLAXIS
     Route: 065
  23. COSENTYX [Suspect]
     Active Substance: SECUKINUMAB
     Dosage: 150 MG, PER APPLICATION
     Route: 065
     Dates: start: 20170525
  24. COSENTYX [Suspect]
     Active Substance: SECUKINUMAB
     Dosage: 150 MG PER APPLICATION
     Route: 065
     Dates: start: 20170601
  25. COSENTYX [Suspect]
     Active Substance: SECUKINUMAB
     Dosage: 150 MG PER APPLICATION
     Route: 065
     Dates: start: 20180215
  26. RUBIEFOL [Concomitant]
     Indication: PSORIATIC ARTHROPATHY
     Dosage: 5 MG, QW
     Route: 048
     Dates: start: 20161215

REACTIONS (28)
  - Nausea [Unknown]
  - Coordination abnormal [Unknown]
  - Chromaturia [Unknown]
  - Faeces soft [Unknown]
  - Acute kidney injury [Recovered/Resolved]
  - Glomerular filtration rate decreased [Unknown]
  - Infection [Unknown]
  - Blood pressure systolic decreased [Unknown]
  - Cardiovascular disorder [Unknown]
  - Transaminases increased [Unknown]
  - Hyperhidrosis [Unknown]
  - Acute hepatic failure [Unknown]
  - General physical health deterioration [Recovering/Resolving]
  - Dizziness [Unknown]
  - Hepatitis E [Recovered/Resolved]
  - Cold sweat [Recovering/Resolving]
  - Urticaria [Recovered/Resolved]
  - Palpitations [Unknown]
  - Dysphagia [Recovering/Resolving]
  - Ocular icterus [Unknown]
  - Jaundice [Unknown]
  - Dyspnoea [Unknown]
  - Angioedema [Recovered/Resolved]
  - Diarrhoea [Unknown]
  - Hyperbilirubinaemia [Unknown]
  - Drug-induced liver injury [Recovering/Resolving]
  - Feeling cold [Unknown]
  - C-reactive protein increased [Unknown]

NARRATIVE: CASE EVENT DATE: 20170525
